FAERS Safety Report 5965122-2 (Version None)
Quarter: 2008Q4

REPORT INFORMATION
  Report Type: 
  Country: None (occurrence: None)
  Receive Date: 20081124
  Receipt Date: 20081124
  Transmission Date: 20090506
  Serious: No
  Sender: FDA-Public Use
  Company Number: None

PATIENT
  Sex: Male
  Weight: 17.8 kg

DRUGS (2)
  1. CYTARABINE [Suspect]
     Dosage: 9000 MG
  2. PEG-L-ASPARAGINASE (K-H) [Suspect]
     Dosage: 1875 UNIT

REACTIONS (18)
  - ANAL FISSURE [None]
  - BRADYCARDIA [None]
  - CARDIAC ARREST [None]
  - CARDIO-RESPIRATORY ARREST [None]
  - CHEST X-RAY ABNORMAL [None]
  - GRUNTING [None]
  - LETHARGY [None]
  - METABOLIC ACIDOSIS [None]
  - MULTI-ORGAN DISORDER [None]
  - NECROSIS [None]
  - NEUTROPENIA [None]
  - PAIN [None]
  - PNEUMONIA [None]
  - PROCTALGIA [None]
  - PULMONARY OEDEMA [None]
  - SEPTIC SHOCK [None]
  - TACHYPNOEA [None]
  - ULCER [None]
